FAERS Safety Report 10398340 (Version 3)
Quarter: 2015Q3

REPORT INFORMATION
  Report Type: Report from Study
  Country: US (occurrence: US)
  Receive Date: 20140821
  Receipt Date: 20150705
  Transmission Date: 20151125
  Serious: Yes (Hospitalization)
  Sender: FDA-Public Use
  Company Number: US-SA-2014SA110084

PATIENT
  Age: 40 Year
  Sex: Female
  Weight: 70 kg

DRUGS (1)
  1. FABRAZYME [Suspect]
     Active Substance: AGALSIDASE BETA
     Indication: FABRY^S DISEASE
     Dosage: DOSE: 1 MG/KG (70 MGS)
     Route: 042
     Dates: start: 20060112

REACTIONS (6)
  - Nausea [Recovered/Resolved]
  - Pain [Recovered/Resolved]
  - Vision blurred [Unknown]
  - Cholelithiasis [Recovered/Resolved]
  - Hypotension [Unknown]
  - Hyperhidrosis [Recovered/Resolved]

NARRATIVE: CASE EVENT DATE: 20140510
